FAERS Safety Report 4885949-8 (Version None)
Quarter: 2006Q1

REPORT INFORMATION
  Report Type: 
  Country: None (occurrence: None)
  Receive Date: 20060118
  Receipt Date: 20060118
  Transmission Date: 20060701
  Serious: Yes (Other)
  Sender: FDA-Public Use
  Company Number: None

PATIENT
  Age: 70 Year
  Sex: Female

DRUGS (1)
  1. FEXOFENADINE 180MG AVENTIS [Suspect]
     Dosage: TAKE 1 TABLET BY MOUTH DAILY
     Dates: start: 20051230

REACTIONS (1)
  - BLOOD URINE PRESENT [None]
